FAERS Safety Report 8172028-X (Version None)
Quarter: 2012Q1

REPORT INFORMATION
  Report Type: 
  Country: None (occurrence: None)
  Receive Date: 20120228
  Receipt Date: 20120222
  Transmission Date: 20120608
  Serious: Yes (Life-Threatening)
  Sender: FDA-Public Use
  Company Number: PHHY2012JP015214

PATIENT
  Age: 79 Year
  Sex: Male
  Weight: 53 kg

DRUGS (14)
  1. ETHAMBUTOL HYDROCHLORIDE [Concomitant]
     Route: 048
     Dates: start: 20111115
  2. RIFAMPICIN [Suspect]
     Indication: PULMONARY TUBERCULOSIS
     Dosage: 150 MG, UNK
     Route: 048
     Dates: start: 20111115, end: 20111228
  3. ISONIAZID [Concomitant]
     Dates: start: 20111115, end: 20111228
  4. DIGOXIN [Concomitant]
  5. FAMOTIDINE [Concomitant]
     Route: 048
  6. GASMOTIN [Concomitant]
     Route: 048
  7. WARFARIN SODIUM [Concomitant]
     Route: 048
  8. LASIX [Concomitant]
  9. SENNOSIDE [Concomitant]
     Route: 048
  10. DILTIAZEM HCL [Concomitant]
  11. RIFAMPICIN [Suspect]
     Dosage: 450 MG, DAILY DOSE
     Route: 048
     Dates: start: 20120117, end: 20120118
  12. LEVOFLOXACIN [Concomitant]
  13. MAGMITT [Concomitant]
     Route: 048
  14. GLYCYRON [Concomitant]

REACTIONS (8)
  - INTERSTITIAL LUNG DISEASE [None]
  - LIP EROSION [None]
  - RESPIRATORY DISORDER [None]
  - RASH [None]
  - PYREXIA [None]
  - LIVER DISORDER [None]
  - LIP HAEMORRHAGE [None]
  - STEVENS-JOHNSON SYNDROME [None]
